FAERS Safety Report 4607574-6 (Version None)
Quarter: 2005Q1

REPORT INFORMATION
  Report Type: 
  Country: None (occurrence: None)
  Receive Date: 20050309
  Receipt Date: 20050301
  Transmission Date: 20050727
  Serious: No
  Sender: FDA-Public Use
  Company Number: 2005GB00431

PATIENT
  Age: 45 Year
  Sex: Male

DRUGS (2)
  1. OMEPRAZOLE [Suspect]
  2. EFFEXOR [Suspect]
     Indication: DEPRESSION
     Dosage: 150 MG QD

REACTIONS (4)
  - DUODENAL ULCER [None]
  - GASTRIC ULCER [None]
  - HAEMATEMESIS [None]
  - HAEMORRHAGE [None]
